FAERS Safety Report 16981796 (Version 2)
Quarter: 2019Q4

REPORT INFORMATION
  Report Type: Spontaneous
  Country: AT (occurrence: AT)
  Receive Date: 20191101
  Receipt Date: 20191218
  Transmission Date: 20200122
  Serious: Yes (Other)
  Sender: FDA-Public Use
  Company Number: AT-AMGEN-AUTSP2019177585

PATIENT
  Sex: Female

DRUGS (2)
  1. XGEVA [Suspect]
     Active Substance: DENOSUMAB
     Indication: BREAST CANCER
     Dosage: 120 MILLIGRAM, Q6MO
     Route: 065
     Dates: start: 2016
  2. XGEVA [Suspect]
     Active Substance: DENOSUMAB
     Indication: PROPHYLAXIS

REACTIONS (11)
  - Off label use [Unknown]
  - Pain in extremity [Unknown]
  - Asthenia [Unknown]
  - Hypersensitivity [Unknown]
  - Back pain [Unknown]
  - Breast cancer [Recovered/Resolved]
  - Tinnitus [Unknown]
  - Urinary tract infection [Unknown]
  - Infection susceptibility increased [Unknown]
  - Dyspepsia [Unknown]
  - Nocturnal dyspnoea [Unknown]
